FAERS Safety Report 10065445 (Version 2)
Quarter: 2014Q2

REPORT INFORMATION
  Report Type: Spontaneous
  Country: IT (occurrence: IT)
  Receive Date: 20140408
  Receipt Date: 20140408
  Transmission Date: 20141212
  Serious: Yes (Other)
  Sender: FDA-Public Use
  Company Number: PHHY2014IT034835

PATIENT
  Age: 33 Year
  Sex: Female

DRUGS (4)
  1. VOLTAREN [Suspect]
     Dosage: UNK UKN, UNK
  2. PANTORC [Suspect]
     Dosage: UNK UKN, UNK
  3. ENBREL [Suspect]
     Indication: RHEUMATOID ARTHRITIS
     Dosage: UNK UKN, 1 POS. UNIT WEEKLY
  4. PLAQUENIL [Suspect]
     Dosage: UNK UKN, UNK

REACTIONS (3)
  - Pain [Unknown]
  - Arthritis [Unknown]
  - Lower respiratory tract infection [Unknown]
